FAERS Safety Report 10271480 (Version 2)
Quarter: 2014Q4

REPORT INFORMATION
  Report Type: Spontaneous
  Country: AT (occurrence: AT)
  Receive Date: 20140701
  Receipt Date: 20141223
  Transmission Date: 20150528
  Serious: Yes (Hospitalization, Other)
  Sender: FDA-Public Use
  Company Number: AT-ASTRAZENECA-2014SE46271

PATIENT
  Age: 51 Year
  Sex: Female

DRUGS (22)
  1. SEROQUEL XR [Suspect]
     Active Substance: QUETIAPINE FUMARATE
     Route: 048
     Dates: start: 20130907, end: 20130907
  2. ZYPREXA [Suspect]
     Active Substance: OLANZAPINE
     Route: 048
  3. LAEVOLAC EL [Concomitant]
     Indication: CONSTIPATION
     Route: 048
     Dates: start: 20130910, end: 20130925
  4. SEROQUEL XR [Suspect]
     Active Substance: QUETIAPINE FUMARATE
     Route: 048
     Dates: start: 20130912, end: 20130912
  5. ASPIRIN. [Suspect]
     Active Substance: ASPIRIN
     Route: 048
     Dates: start: 20130910, end: 20130923
  6. SEROQUEL XR [Suspect]
     Active Substance: QUETIAPINE FUMARATE
     Route: 048
     Dates: start: 200512
  7. NOZINAN [Suspect]
     Active Substance: LEVOMEPROMAZINE
     Route: 048
     Dates: start: 20130909, end: 20130916
  8. SEROQUEL XR [Suspect]
     Active Substance: QUETIAPINE FUMARATE
     Route: 048
     Dates: start: 201403
  9. SEROQUEL XR [Suspect]
     Active Substance: QUETIAPINE FUMARATE
     Route: 048
     Dates: start: 20130907, end: 20130907
  10. SEROQUEL XR [Suspect]
     Active Substance: QUETIAPINE FUMARATE
     Route: 048
     Dates: start: 20130915, end: 20130916
  11. PSYCHOPAX [Suspect]
     Active Substance: DIAZEPAM
     Route: 048
     Dates: start: 20130912, end: 20130929
  12. SEROQUEL XR [Suspect]
     Active Substance: QUETIAPINE FUMARATE
     Route: 048
     Dates: start: 20130913, end: 20130913
  13. SEROQUEL XR [Suspect]
     Active Substance: QUETIAPINE FUMARATE
     Route: 048
     Dates: start: 20130917, end: 20130921
  14. SEROQUEL XR [Suspect]
     Active Substance: QUETIAPINE FUMARATE
     Route: 048
     Dates: start: 20130922, end: 20130924
  15. PSYCHOPAX [Suspect]
     Active Substance: DIAZEPAM
     Route: 048
  16. ASPIRIN. [Suspect]
     Active Substance: ASPIRIN
     Route: 048
  17. ROHYPNOL [Concomitant]
     Active Substance: FLUNITRAZEPAM
     Indication: RESTLESSNESS
     Route: 048
  18. SEROQUEL XR [Suspect]
     Active Substance: QUETIAPINE FUMARATE
     Route: 048
     Dates: start: 20130914, end: 20130914
  19. ZYPREXA [Suspect]
     Active Substance: OLANZAPINE
     Route: 048
     Dates: start: 20130910, end: 20131001
  20. URSOFALK [Concomitant]
     Active Substance: URSODIOL
     Route: 048
     Dates: start: 201305
  21. SEROQUEL XR [Suspect]
     Active Substance: QUETIAPINE FUMARATE
     Route: 048
     Dates: start: 20130908, end: 20130911
  22. SEROQUEL XR [Suspect]
     Active Substance: QUETIAPINE FUMARATE
     Route: 048
     Dates: start: 20130925

REACTIONS (4)
  - Blood creatinine increased [Recovered/Resolved]
  - Urinary retention [Recovered/Resolved]
  - Urinary tract infection [Unknown]
  - Hydronephrosis [Unknown]

NARRATIVE: CASE EVENT DATE: 20130917
